FAERS Safety Report 7470679-9 (Version None)
Quarter: 2011Q2

REPORT INFORMATION
  Report Type: 
  Country: None (occurrence: None)
  Receive Date: 20110510
  Receipt Date: 20110405
  Transmission Date: 20111010
  Serious: No
  Sender: FDA-Public Use
  Company Number: US-BAYER-2011-030597

PATIENT
  Age: 51 Year
  Sex: Female
  Weight: 136 kg

DRUGS (5)
  1. COUMADIN [Concomitant]
     Dosage: UNK
     Route: 048
  2. PLAVIX [Concomitant]
     Dosage: UNK
     Route: 048
  3. ALEVE (CAPLET) [Suspect]
     Indication: BACK PAIN
     Dosage: 3 DF, ONCE
     Route: 048
  4. INSULIN [Concomitant]
  5. ASPIRIN [Concomitant]
     Dosage: UNK
     Route: 048

REACTIONS (1)
  - NO ADVERSE EVENT [None]
